FAERS Safety Report 12929708 (Version 2)
Quarter: 2016Q4

REPORT INFORMATION
  Report Type: Report from Study
  Country: CA (occurrence: CA)
  Receive Date: 20161110
  Receipt Date: 20161123
  Transmission Date: 20170207
  Serious: Yes (Hospitalization)
  Sender: FDA-Public Use
  Company Number: CA-AMGEN-CANCT2013030212

PATIENT
  Age: 67 Year
  Sex: Male

DRUGS (12)
  1. HYDROCORTISONE. [Concomitant]
     Active Substance: HYDROCORTISONE
     Dosage: UNK UNK, AS NECESSARY
     Route: 061
     Dates: start: 20091227
  2. CLINDAMYCIN. [Concomitant]
     Active Substance: CLINDAMYCIN
     Dosage: UNK UNK, AS NECESSARY
     Route: 061
     Dates: start: 201004
  3. SYNTHROID [Concomitant]
     Active Substance: LEVOTHYROXINE SODIUM
     Dosage: 0.1 MG, QD
     Route: 048
     Dates: start: 201211
  4. MAGNESIUM [Concomitant]
     Active Substance: MAGNESIUM
     Dosage: 3500 MG, QD
     Dates: start: 201001
  5. BABY ASPIRIN [Concomitant]
     Active Substance: ASPIRIN
     Dosage: 81 MG, QD
     Dates: start: 2004
  6. PANITUMUMAB [Suspect]
     Active Substance: PANITUMUMAB
     Indication: SQUAMOUS CELL CARCINOMA OF HEAD AND NECK
     Dosage: 756 MG, Q3WK
     Route: 042
     Dates: start: 20091216, end: 20091216
  7. MINOCYCLINE [Concomitant]
     Active Substance: MINOCYCLINE\MINOCYCLINE HYDROCHLORIDE
     Dosage: 150 MG, QD
     Dates: start: 201011
  8. CLOXACILLIN [Concomitant]
     Active Substance: CLOXACILLIN
     Dosage: 500 MG, QID
     Dates: start: 20130328, end: 20130407
  9. CANDESARTAN [Concomitant]
     Active Substance: CANDESARTAN
     Dosage: 16 MG, QD
     Dates: start: 201202
  10. FUCIDIN [Concomitant]
     Active Substance: FUSIDIC ACID
     Dosage: UNK
     Route: 061
     Dates: start: 201010
  11. PANITUMUMAB [Suspect]
     Active Substance: PANITUMUMAB
     Dosage: 669 MG, Q3WK
     Route: 042
     Dates: start: 20130327
  12. CALAMINE [Concomitant]
     Active Substance: CALAMINE\FERRIC OXIDE RED\ZINC OXIDE
     Dosage: UNK UNK, AS NECESSARY
     Route: 061
     Dates: start: 201209

REACTIONS (3)
  - Back pain [Recovered/Resolved]
  - Confusional state [Recovered/Resolved]
  - Lumbar spinal stenosis [Recovered/Resolved]

NARRATIVE: CASE EVENT DATE: 20130404
